FAERS Safety Report 15670282 (Version 1)
Quarter: 2018Q4

REPORT INFORMATION
  Report Type: Spontaneous
  Country: PK (occurrence: PK)
  Receive Date: 20181129
  Receipt Date: 20181129
  Transmission Date: 20190205
  Serious: Yes (Other)
  Sender: FDA-Public Use
  Company Number: PK-MYLANLABS-2018M1088034

PATIENT
  Age: 18 Year
  Sex: Male

DRUGS (5)
  1. IFOSFAMIDE. [Suspect]
     Active Substance: IFOSFAMIDE
     Indication: SYNOVIAL SARCOMA
     Dosage: EVERY 2-3 WEEKS
     Route: 065
     Dates: start: 2016
  2. ETOPOSIDE. [Suspect]
     Active Substance: ETOPOSIDE
     Indication: SYNOVIAL SARCOMA
     Dosage: EVERY 2-3 WEEKS
     Route: 065
     Dates: start: 2016
  3. VINCRISTINE [Suspect]
     Active Substance: VINCRISTINE
     Indication: SYNOVIAL SARCOMA
     Dosage: EVERY 2-3 WEEKS
     Route: 065
     Dates: start: 2016
  4. CYCLOPHOSPHAMIDE. [Suspect]
     Active Substance: CYCLOPHOSPHAMIDE
     Indication: SYNOVIAL SARCOMA
     Dosage: EVERY 2-3 WEEKS
     Route: 065
     Dates: start: 2016
  5. DOXORUBICIN [Suspect]
     Active Substance: DOXORUBICIN
     Indication: SYNOVIAL SARCOMA
     Dosage: EVERY 2-3 WEEKS
     Route: 065
     Dates: start: 2016

REACTIONS (2)
  - Azoospermia [Unknown]
  - Neutropenia [Unknown]
